FAERS Safety Report 7903107-7 (Version None)
Quarter: 2011Q4

REPORT INFORMATION
  Report Type: 
  Country: None (occurrence: None)
  Receive Date: 20111107
  Receipt Date: 20111031
  Transmission Date: 20120403
  Serious: Yes (Other)
  Sender: FDA-Public Use
  Company Number: 2011SP033172

PATIENT
  Age: 62 Year
  Sex: Male

DRUGS (9)
  1. SEROQUEL [Suspect]
     Indication: PROPHYLAXIS
     Dosage: 2000 MG;PO, 300 MG;
  2. SEROQUEL [Suspect]
     Indication: MOOD SWINGS
     Dosage: 2000 MG;PO, 300 MG;
  3. METOPROLOL SUCCINATE [Concomitant]
  4. SYCREST (ASENAPINE) [Suspect]
     Indication: MANIA
     Dosage: 10 MG;QD, 15 MG; QD, 20 MG;QD, 10 MG;QAM
     Dates: start: 20110713, end: 20110713
  5. SYCREST (ASENAPINE) [Suspect]
     Indication: MANIA
     Dosage: 10 MG;QD, 15 MG; QD, 20 MG;QD, 10 MG;QAM
     Dates: start: 20110708, end: 20110712
  6. SYCREST (ASENAPINE) [Suspect]
     Indication: MANIA
     Dosage: 10 MG;QD, 15 MG; QD, 20 MG;QD, 10 MG;QAM
     Dates: start: 20110701, end: 20110703
  7. SYCREST (ASENAPINE) [Suspect]
     Indication: MANIA
     Dosage: 10 MG;QD, 15 MG; QD, 20 MG;QD, 10 MG;QAM
     Dates: start: 20110704, end: 20110707
  8. VALPROATE SODIUM [Suspect]
     Indication: MOOD SWINGS
     Dosage: 2300 MG;PO, 2000 MG;PO
  9. VALPROATE SODIUM [Suspect]
     Indication: PROPHYLAXIS
     Dosage: 2300 MG;PO, 2000 MG;PO

REACTIONS (10)
  - HYPERTENSION [None]
  - BLOOD LACTATE DEHYDROGENASE INCREASED [None]
  - DYSARTHRIA [None]
  - BLOOD CREATINE PHOSPHOKINASE INCREASED [None]
  - BLOOD CREATININE INCREASED [None]
  - BLOOD CALCIUM INCREASED [None]
  - DEHYDRATION [None]
  - DIZZINESS [None]
  - HEART RATE INCREASED [None]
  - VASCULAR ENCEPHALOPATHY [None]
